FAERS Safety Report 17039131 (Version 1)
Quarter: 2019Q4

REPORT INFORMATION
  Report Type: Spontaneous
  Country: US (occurrence: US)
  Receive Date: 20191115
  Receipt Date: 20191115
  Transmission Date: 20200122
  Serious: No
  Sender: FDA-Public Use
  Company Number: US-SA-2019SA310085

PATIENT
  Age: 11 Month
  Sex: Female

DRUGS (1)
  1. RANITIDINE. [Suspect]
     Active Substance: RANITIDINE
     Dosage: UNK UNK, UNK
     Route: 065

REACTIONS (2)
  - Respiratory tract congestion [Unknown]
  - Condition aggravated [Unknown]
